FAERS Safety Report 10459592 (Version 1)
Quarter: 2014Q3

REPORT INFORMATION
  Report Type: Spontaneous
  Country: FR (occurrence: FR)
  Receive Date: 20140917
  Receipt Date: 20140917
  Transmission Date: 20150326
  Serious: Yes (Other)
  Sender: FDA-Public Use
  Company Number: FR-CUBIST PHARMACEUTICALS, INC.-2014CBST001291

PATIENT

DRUGS (3)
  1. BETA-LACTAM ANTIBACTERIALS [Concomitant]
     Indication: GRAFT INFECTION
     Dosage: UNK UNK, UNK
     Route: 065
  2. CUBICIN [Suspect]
     Active Substance: DAPTOMYCIN
     Indication: GRAFT INFECTION
     Dosage: MORE THAN 8 MG/KG, QD
     Route: 065
  3. CUBICIN [Suspect]
     Active Substance: DAPTOMYCIN
     Indication: OFF LABEL USE

REACTIONS (1)
  - Pneumonia bacterial [Unknown]
